FAERS Safety Report 7929870-7 (Version None)
Quarter: 2011Q4

REPORT INFORMATION
  Report Type: 
  Country: None (occurrence: None)
  Receive Date: 20111121
  Receipt Date: 20111116
  Transmission Date: 20120403
  Serious: No
  Sender: FDA-Public Use
  Company Number: US-PFIZER INC-2011281297

PATIENT
  Sex: Female
  Weight: 45.3 kg

DRUGS (2)
  1. SPIRONOLACTONE [Suspect]
     Indication: OFF LABEL USE
  2. SPIRONOLACTONE [Suspect]
     Indication: ACNE
     Dosage: 25 MG, 2X/DAY
     Route: 048
     Dates: start: 20070101

REACTIONS (1)
  - ALOPECIA [None]
